FAERS Safety Report 16944094 (Version 2)
Quarter: 2019Q4

REPORT INFORMATION
  Report Type: Spontaneous
  Country: JP (occurrence: JP)
  Receive Date: 20191022
  Receipt Date: 20191127
  Transmission Date: 20200122
  Serious: Yes (Hospitalization, Disabling)
  Sender: FDA-Public Use
  Company Number: JP-B.I. PHARMACEUTICALS,INC./RIDGEFIELD-2019-NB-003684

PATIENT
  Age: 70 Year
  Sex: Male
  Weight: 62 kg

DRUGS (6)
  1. NEXIUM [Concomitant]
     Active Substance: ESOMEPRAZOLE MAGNESIUM
     Indication: PROPHYLAXIS
     Route: 048
  2. LOSARHYD [Concomitant]
     Active Substance: HYDROCHLOROTHIAZIDE\LOSARTAN POTASSIUM
     Indication: HYPERTENSION
     Route: 048
  3. AMLODIPINE [AMLODIPINE BESILATE] [Concomitant]
     Active Substance: AMLODIPINE BESYLATE
     Indication: HYPERTENSION
     Route: 048
  4. PRAZAXA [Suspect]
     Active Substance: DABIGATRAN ETEXILATE MESYLATE
     Indication: ATRIAL FIBRILLATION
     Route: 048
     Dates: start: 201404, end: 20190807
  5. PRAZAXA [Suspect]
     Active Substance: DABIGATRAN ETEXILATE MESYLATE
     Route: 048
     Dates: start: 20190808
  6. FLUVASTATIN [FLUVASTATIN SODIUM] [Concomitant]
     Indication: HYPERLIPIDAEMIA
     Route: 048

REACTIONS (3)
  - Catheter site haemorrhage [Recovered/Resolved]
  - Atrial fibrillation [Recovering/Resolving]
  - Cardiomegaly [Unknown]

NARRATIVE: CASE EVENT DATE: 201907
